FAERS Safety Report 4600628-X (Version None)
Quarter: 2005Q1

REPORT INFORMATION
  Report Type: 
  Country: None (occurrence: None)
  Receive Date: 20050304
  Receipt Date: 20050211
  Transmission Date: 20050727
  Serious: No
  Sender: FDA-Public Use
  Company Number: 10295

PATIENT

DRUGS (5)
  1. VINCRISTINE [Suspect]
     Indication: AMYLOIDOSIS
     Dosage: 0.4 MG, IV
     Route: 042
  2. DOXORUBICIN HCL [Suspect]
     Indication: AMYLOIDOSIS
     Dosage: 9 MG/M2, IV
     Route: 042
  3. DEXAMETHASONE [Suspect]
     Indication: AMYLOIDOSIS
     Dosage: 40MG, IV
     Route: 042
  4. ETOPOSIDE [Concomitant]
  5. GRANULOCYTE COLONY STIMULATING FACTOR [Concomitant]

REACTIONS (4)
  - ENCEPHALOPATHY [None]
  - FLUID RETENTION [None]
  - GENERALISED OEDEMA [None]
  - PLEURAL EFFUSION [None]
